FAERS Safety Report 4981147-8 (Version None)
Quarter: 2006Q1

REPORT INFORMATION
  Report Type: 
  Country: None (occurrence: None)
  Receive Date: 20060227
  Receipt Date: 20050708
  Transmission Date: 20060701
  Serious: Yes (Other)
  Sender: FDA-Public Use
  Company Number: WAES 0507USA01156

PATIENT

DRUGS (2)
  1. ZOCOR [Suspect]
     Dosage: PO
     Route: 048
  2. BIAXIN [Suspect]
     Indication: HELICOBACTER INFECTION

REACTIONS (3)
  - DRUG INTERACTION [None]
  - HELICOBACTER INFECTION [None]
  - RHABDOMYOLYSIS [None]
